FAERS Safety Report 4335881-3 (Version None)
Quarter: 2004Q2

REPORT INFORMATION
  Report Type: 
  Country: None (occurrence: None)
  Receive Date: 20040405
  Receipt Date: 20040319
  Transmission Date: 20050107
  Serious: Yes (Hospitalization)
  Sender: FDA-Public Use
  Company Number: 230011M04SWE

PATIENT
  Age: 40 Year
  Sex: Male

DRUGS (3)
  1. REBIF [Suspect]
     Indication: MULTIPLE SCLEROSIS
     Dosage: 22 MCG, 3 IN 1 WEEKS, SUBCUTANEOUS
     Route: 058
     Dates: start: 20010607, end: 20030303
  2. AMITRIPTYLINE HYDROCHLORIDE [Concomitant]
  3. KETOPROFEN [Concomitant]

REACTIONS (3)
  - INJECTION SITE ABSCESS [None]
  - MOBILITY DECREASED [None]
  - PURULENT DISCHARGE [None]
